FAERS Safety Report 6147731-3 (Version None)
Quarter: 2009Q2

REPORT INFORMATION
  Report Type: 
  Country: None (occurrence: None)
  Receive Date: 20090402
  Receipt Date: 20090317
  Transmission Date: 20091009
  Serious: Yes (Other)
  Sender: FDA-Public Use
  Company Number: 8040302

PATIENT
  Age: 15 Year
  Sex: Female
  Weight: 62 kg

DRUGS (1)
  1. EQUASYM [Suspect]
     Dosage: 15 MG /D PO
     Route: 048
     Dates: start: 20070901

REACTIONS (1)
  - CHEST PAIN [None]
